FAERS Safety Report 4957233-5 (Version None)
Quarter: 2006Q1

REPORT INFORMATION
  Report Type: 
  Country: None (occurrence: None)
  Receive Date: 20060329
  Receipt Date: 20060111
  Transmission Date: 20060701
  Serious: Yes (Hospitalization)
  Sender: FDA-Public Use
  Company Number: FR-MERCK-0601FRA00079

PATIENT
  Age: 62 Year
  Sex: Female

DRUGS (5)
  1. ZOCOR [Suspect]
     Indication: HYPERCHOLESTEROLAEMIA
     Route: 048
     Dates: start: 20030101, end: 20060101
  2. ALTHIAZIDE AND SPIRONOLACTONE [Concomitant]
     Indication: HYPERTENSION
     Route: 048
  3. LEVOTHYROXINE SODIUM [Concomitant]
     Indication: HYPOTHYROIDISM
     Route: 048
  4. ESTRADIOL [Concomitant]
     Indication: POSTMENOPAUSE
     Route: 048
  5. PROGESTERONE [Concomitant]
     Indication: POSTMENOPAUSE
     Route: 048

REACTIONS (6)
  - ASTHENIA [None]
  - HEPATIC FUNCTION ABNORMAL [None]
  - HEPATIC STEATOSIS [None]
  - MYALGIA [None]
  - NON-CARDIAC CHEST PAIN [None]
  - PANCREATIC CARCINOMA [None]
